FAERS Safety Report 18359338 (Version 1)
Quarter: 2020Q4

REPORT INFORMATION
  Report Type: Spontaneous
  Country: US (occurrence: US)
  Receive Date: 20201006
  Receipt Date: 20201006
  Transmission Date: 20210114
  Serious: No
  Sender: FDA-Public Use
  Company Number: None

PATIENT
  Sex: Male

DRUGS (1)
  1. HUMIRA [Suspect]
     Active Substance: ADALIMUMAB
     Indication: CROHN^S DISEASE
     Route: 058
     Dates: start: 202008

REACTIONS (5)
  - Therapeutic product effect decreased [None]
  - Symptom recurrence [None]
  - Headache [None]
  - Diarrhoea [None]
  - Crohn^s disease [None]
